FAERS Safety Report 22596109 (Version 1)
Quarter: 2023Q2

REPORT INFORMATION
  Report Type: Other
  Country: IN (occurrence: None)
  Receive Date: 20230613
  Receipt Date: 20230613
  Transmission Date: 20230721
  Serious: Yes (Death)
  Sender: FDA-Public Use
  Company Number: IN-ROCHE-3263516

PATIENT
  Age: 70 Year
  Sex: Male

DRUGS (1)
  1. TECENTRIQ [Suspect]
     Active Substance: ATEZOLIZUMAB
     Indication: Non-small cell lung cancer
     Route: 041
     Dates: start: 20220208

REACTIONS (2)
  - Multiple organ dysfunction syndrome [Fatal]
  - Pyrexia [Recovered/Resolved]
